FAERS Safety Report 10761048 (Version 3)
Quarter: 2016Q2

REPORT INFORMATION
  Report Type: Spontaneous
  Country: US (occurrence: US)
  Receive Date: 20150204
  Receipt Date: 20160608
  Transmission Date: 20160815
  Serious: Yes (Other)
  Sender: FDA-Public Use
  Company Number: US-BAYER-2015-016296

PATIENT
  Age: 48 Year
  Sex: Female

DRUGS (2)
  1. MIRENA [Suspect]
     Active Substance: LEVONORGESTREL
     Indication: CONTRACEPTION
     Dosage: 20 UNK, CONT
     Route: 015
     Dates: start: 200912, end: 20150218
  2. MIRENA [Suspect]
     Active Substance: LEVONORGESTREL
     Indication: CONTRACEPTION
     Dosage: 20 MCG/24HR, CONT
     Route: 015

REACTIONS (6)
  - Device dislocation [None]
  - Device difficult to use [Not Recovered/Not Resolved]
  - Genital haemorrhage [None]
  - Device use error [Not Recovered/Not Resolved]
  - Device dislocation [Not Recovered/Not Resolved]
  - Inflammation [None]

NARRATIVE: CASE EVENT DATE: 201412
